FAERS Safety Report 10121159 (Version 2)
Quarter: 2014Q2

REPORT INFORMATION
  Report Type: Report from Study
  Country: DE (occurrence: DE)
  Receive Date: 20140425
  Receipt Date: 20140425
  Transmission Date: 20141212
  Serious: Yes (Hospitalization)
  Sender: FDA-Public Use
  Company Number: DE-UCBSA-001187

PATIENT
  Age: 74 Year
  Sex: Male
  Weight: 68 kg

DRUGS (19)
  1. NEUPRO [Suspect]
     Indication: PARKINSON^S DISEASE
     Route: 062
     Dates: start: 20070620, end: 20070923
  2. NEUPRO [Suspect]
     Indication: PARKINSON^S DISEASE
     Route: 062
     Dates: start: 20070924
  3. AMANTADIN [Concomitant]
     Indication: PARKINSON^S DISEASE
     Dates: start: 20030428, end: 20070619
  4. AMANTADIN [Concomitant]
     Indication: PARKINSON^S DISEASE
     Dates: start: 20070620
  5. SIFROL [Concomitant]
     Indication: PARKINSON^S DISEASE
     Dates: start: 20051123, end: 20051127
  6. SIFROL [Concomitant]
     Indication: PARKINSON^S DISEASE
     Dates: start: 20051128, end: 20051202
  7. SIFROL [Concomitant]
     Indication: PARKINSON^S DISEASE
     Dosage: 2-2-1
     Dates: start: 20051203, end: 20051207
  8. SIFROL [Concomitant]
     Indication: PARKINSON^S DISEASE
     Dosage: 2 - 2 - 2
     Dates: start: 20051208, end: 20051218
  9. SIFROL [Concomitant]
     Indication: PARKINSON^S DISEASE
     Dates: start: 20051219
  10. SIFROL [Concomitant]
     Indication: PARKINSON^S DISEASE
     Dosage: 0.35 MG, 2-1-1
  11. STALEVO [Concomitant]
     Indication: PARKINSON^S DISEASE
     Dosage: 100/25/200 MG TWICE DAILY
     Dates: start: 20060531, end: 20060910
  12. STALEVO [Concomitant]
     Indication: PARKINSON^S DISEASE
     Dosage: 100/25/200 MG THREE TIMES DAILY
     Dates: start: 20060911
  13. NIFEDIPIN [Concomitant]
     Indication: HYPERTENSION
     Dosage: ONCE DAILY
  14. LOCOL [Concomitant]
     Indication: HYPERCHOLESTEROLAEMIA
  15. ISCOVER [Concomitant]
     Indication: PROPHYLAXIS
     Dates: start: 20041214
  16. ASS [Concomitant]
     Indication: THROMBOSIS
     Dates: start: 200812
  17. ASS [Concomitant]
     Indication: CEREBROVASCULAR DISORDER
     Dates: start: 200812
  18. ARICEPT [Concomitant]
     Indication: DEMENTIA
     Dates: start: 20081203, end: 20081215
  19. ARICEPT [Concomitant]
     Indication: DEMENTIA
     Dates: start: 20081216

REACTIONS (1)
  - Ileus [Recovered/Resolved]
